FAERS Safety Report 23994024 (Version 2)
Quarter: 2024Q3

REPORT INFORMATION
  Report Type: Spontaneous
  Country: JP (occurrence: JP)
  Receive Date: 20240620
  Receipt Date: 20240802
  Transmission Date: 20241017
  Serious: Yes (Life-Threatening, Other)
  Sender: BAYER
  Company Number: JP-BAYER-2024A088937

PATIENT
  Age: 67 Year
  Sex: Male

DRUGS (2)
  1. NUBEQA [Suspect]
     Active Substance: DAROLUTAMIDE
     Indication: Hormone-refractory prostate cancer
     Dosage: DAILY DOSE 1200 MG
     Route: 048
     Dates: start: 20230214, end: 20230721
  2. NUBEQA [Suspect]
     Active Substance: DAROLUTAMIDE
     Indication: Hormone-refractory prostate cancer
     Dosage: DAILY DOSE 1200 MG
     Route: 048

REACTIONS (2)
  - Colon cancer [Recovering/Resolving]
  - Metastases to liver [None]

NARRATIVE: CASE EVENT DATE: 20240418
